FAERS Safety Report 24773997 (Version 2)
Quarter: 2025Q1

REPORT INFORMATION
  Report Type: Spontaneous
  Country: US (occurrence: US)
  Receive Date: 20241225
  Receipt Date: 20250210
  Transmission Date: 20250408
  Serious: No
  Sender: SANOFI AVENTIS
  Company Number: US-SA-2024SA378511

PATIENT
  Sex: Female
  Weight: 55.91 kg

DRUGS (32)
  1. DUPIXENT [Suspect]
     Active Substance: DUPILUMAB
     Indication: Eczema
     Dosage: 300 MG, QOW
     Route: 058
  2. DUPIXENT [Suspect]
     Active Substance: DUPILUMAB
     Indication: Dermatitis atopic
  3. ROSUVASTATIN CALCIUM [Concomitant]
     Active Substance: ROSUVASTATIN CALCIUM
  4. ESTRADIOL [Concomitant]
     Active Substance: ESTRADIOL
  5. ATORVASTATIN CALCIUM [Concomitant]
     Active Substance: ATORVASTATIN CALCIUM
  6. HUMALOG [Concomitant]
     Active Substance: INSULIN LISPRO
  7. LANTUS [Concomitant]
     Active Substance: INSULIN GLARGINE
  8. FLUOCINOLONE ACETONIDE [Concomitant]
     Active Substance: FLUOCINOLONE ACETONIDE
  9. DOXYCYCLINE HYCLATE [Concomitant]
     Active Substance: DOXYCYCLINE HYCLATE
  10. LEVOTHYROXINE SODIUM [Concomitant]
     Active Substance: LEVOTHYROXINE SODIUM
  11. KETOCONAZOLE [Concomitant]
     Active Substance: KETOCONAZOLE
  12. SERTRALINE HYDROCHLORIDE [Concomitant]
     Active Substance: SERTRALINE HYDROCHLORIDE
  13. HYDROCHLOROTHIAZIDE [Concomitant]
     Active Substance: HYDROCHLOROTHIAZIDE
  14. MUPIROCIN [Concomitant]
     Active Substance: MUPIROCIN
  15. AMOXICILLIN [Concomitant]
     Active Substance: AMOXICILLIN
  16. BETAMETHASONE DIPROPIONATE [Concomitant]
     Active Substance: BETAMETHASONE DIPROPIONATE
  17. ZINC [Concomitant]
     Active Substance: ZINC
  18. VITAMIN D3 [Concomitant]
     Active Substance: CHOLECALCIFEROL
  19. IBUPROFEN [Concomitant]
     Active Substance: IBUPROFEN
  20. HALOBETASOL PROPIONATE [Concomitant]
     Active Substance: HALOBETASOL PROPIONATE
  21. DESONIDE [Concomitant]
     Active Substance: DESONIDE
  22. DICLOFENAC SODIUM [Concomitant]
     Active Substance: DICLOFENAC SODIUM
  23. EBGLYSS [Concomitant]
     Active Substance: LEBRIKIZUMAB-LBKZ
  24. VITAMINS NOS [Concomitant]
     Active Substance: VITAMINS
  25. FISH OIL [Concomitant]
     Active Substance: FISH OIL
  26. FLUZONE HIGH-DOSE NOS [Concomitant]
     Active Substance: INFLUENZA A VIRUS A/CALIFORNIA/7/2009 X-179A (H1N1) ANTIGEN (FORMALDEHYDE INACTIVATED)\INFLUENZA A V
  27. CETIRIZINE [Concomitant]
     Active Substance: CETIRIZINE HYDROCHLORIDE
  28. CEPHALEXIN [Concomitant]
     Active Substance: CEPHALEXIN
  29. NITROFURANTOIN MONOHYDRATE MACROCRYSTALS [Concomitant]
     Active Substance: NITROFURANTOIN\NITROFURANTOIN MONOHYDRATE
  30. VITAMIN C [Concomitant]
     Active Substance: ASCORBIC ACID
  31. ADBRY [Concomitant]
     Active Substance: TRALOKINUMAB-LDRM
  32. ZINC GLUCONATE [Concomitant]
     Active Substance: ZINC GLUCONATE

REACTIONS (6)
  - Alopecia [Not Recovered/Not Resolved]
  - Skin burning sensation [Unknown]
  - Pruritus [Not Recovered/Not Resolved]
  - Formication [Not Recovered/Not Resolved]
  - Condition aggravated [Not Recovered/Not Resolved]
  - Drug ineffective [Unknown]
